FAERS Safety Report 23289378 (Version 1)
Quarter: 2023Q4

REPORT INFORMATION
  Report Type: Spontaneous
  Country: FR (occurrence: FR)
  Receive Date: 20231212
  Receipt Date: 20231212
  Transmission Date: 20240110
  Serious: Yes (Disabling)
  Sender: FDA-Public Use
  Company Number: FR-PFIZER INC-202300263527

PATIENT
  Age: 3 Year
  Sex: Male

DRUGS (14)
  1. CYTARABINE [Suspect]
     Active Substance: CYTARABINE
     Indication: Acute lymphocytic leukaemia
     Dosage: 24
     Route: 037
     Dates: start: 20230707, end: 20230721
  2. HYDROCORTISONE [Suspect]
     Active Substance: HYDROCORTISONE
     Indication: Acute lymphocytic leukaemia
     Dosage: UNK (12)
     Route: 037
     Dates: start: 20230707, end: 20230721
  3. METHOTREXATE [Suspect]
     Active Substance: METHOTREXATE
     Indication: Acute lymphocytic leukaemia
     Dosage: 12
     Route: 037
     Dates: start: 20230704, end: 20230721
  4. ACYCLOVIR [Concomitant]
     Active Substance: ACYCLOVIR
     Indication: Infection
     Dosage: 900 MG
     Route: 042
     Dates: start: 20230703, end: 20230725
  5. AMPHOTERICIN B [Concomitant]
     Active Substance: AMPHOTERICIN B
     Indication: Infection
     Dosage: 40 MG
     Route: 042
     Dates: start: 20230707, end: 20230725
  6. INOTUZUMAB OZOGAMICIN [Concomitant]
     Active Substance: INOTUZUMAB OZOGAMICIN
     Indication: Acute lymphocytic leukaemia
     Dosage: 0.31
     Route: 042
     Dates: start: 20230710, end: 20230717
  7. POLYETHYLENE GLYCOLS [Concomitant]
     Active Substance: POLYETHYLENE GLYCOLS
     Indication: Constipation
     Dosage: 8 G
     Route: 048
     Dates: start: 20230708
  8. METHYLPREDNISOLONE [Concomitant]
     Active Substance: METHYLPREDNISOLONE
     Indication: Acute lymphocytic leukaemia
     Dosage: 15
     Route: 042
     Dates: start: 20230710, end: 20230717
  9. METOCLOPRAMIDE [Concomitant]
     Active Substance: METOCLOPRAMIDE
     Indication: Vomiting
     Dosage: 7.5 MG
     Route: 042
     Dates: start: 20230717
  10. NALBUPHINE [Concomitant]
     Active Substance: NALBUPHINE
     Indication: Pain
     Dosage: 12 MG
     Route: 042
     Dates: start: 20230722
  11. ONDANSETRON [Concomitant]
     Active Substance: ONDANSETRON
     Indication: Vomiting
     Dosage: 6 MG
     Route: 042
     Dates: start: 20230710
  12. ACETAMINOPHEN [Concomitant]
     Active Substance: ACETAMINOPHEN
     Indication: Pain
     Dosage: 1 G
     Route: 042
     Dates: start: 20230704
  13. SULFAMETHOXAZOLE [Concomitant]
     Active Substance: SULFAMETHOXAZOLE
     Indication: Infection
     Dosage: 300 MG
     Route: 048
     Dates: start: 20230703
  14. PIPERACILLIN SODIUM\TAZOBACTAM SODIUM [Concomitant]
     Active Substance: PIPERACILLIN SODIUM\TAZOBACTAM SODIUM
     Indication: Infection
     Dosage: 4500 MG
     Route: 042
     Dates: start: 20230715

REACTIONS (2)
  - Neurotoxicity [Not Recovered/Not Resolved]
  - Depressed level of consciousness [Not Recovered/Not Resolved]

NARRATIVE: CASE EVENT DATE: 20230722
